FAERS Safety Report 7592070-7 (Version None)
Quarter: 2011Q2

REPORT INFORMATION
  Report Type: 
  Country: None (occurrence: None)
  Receive Date: 20110628
  Receipt Date: 20110623
  Transmission Date: 20111010
  Serious: Yes (Death)
  Sender: FDA-Public Use
  Company Number: 2011SP029548

PATIENT
  Age: 78 Year
  Sex: Female

DRUGS (6)
  1. MAGNESIUM OXIDE [Concomitant]
  2. MIRTAZAPINE [Suspect]
     Indication: INSOMNIA
     Dosage: 30 MG, QD, PO
     Route: 048
     Dates: start: 20110613, end: 20110615
  3. MIRTAZAPINE [Suspect]
     Indication: DEPRESSION
     Dosage: 30 MG, QD, PO
     Route: 048
     Dates: start: 20110613, end: 20110615
  4. MIRTAZAPINE [Suspect]
     Indication: INSOMNIA
     Dosage: 30 MG, QD, PO
     Route: 048
     Dates: start: 20110603, end: 20110612
  5. MIRTAZAPINE [Suspect]
     Indication: DEPRESSION
     Dosage: 30 MG, QD, PO
     Route: 048
     Dates: start: 20110603, end: 20110612
  6. RISEDRONATE SODIUM [Concomitant]

REACTIONS (2)
  - COMPLETED SUICIDE [None]
  - MIDDLE INSOMNIA [None]
